FAERS Safety Report 16527281 (Version 2)
Quarter: 2019Q3

REPORT INFORMATION
  Report Type: Spontaneous
  Country: US (occurrence: US)
  Receive Date: 20190704
  Receipt Date: 20190724
  Transmission Date: 20191004
  Serious: Yes (Death)
  Sender: FDA-Public Use
  Company Number: US-TEVA-2019-US-1070375

PATIENT
  Age: 25 Year
  Sex: Female

DRUGS (4)
  1. LITHIUM. [Interacting]
     Active Substance: LITHIUM
     Indication: ANXIETY
  2. LITHIUM. [Interacting]
     Active Substance: LITHIUM
     Indication: DEPRESSION
     Route: 065
  3. FLUOXETINE [Interacting]
     Active Substance: FLUOXETINE HYDROCHLORIDE
     Indication: ANXIETY
  4. FLUOXETINE [Suspect]
     Active Substance: FLUOXETINE HYDROCHLORIDE
     Indication: DEPRESSION
     Route: 065

REACTIONS (2)
  - Serotonin syndrome [Fatal]
  - Drug interaction [Fatal]
